FAERS Safety Report 4537407-8 (Version None)
Quarter: 2004Q4

REPORT INFORMATION
  Report Type: 
  Country: None (occurrence: None)
  Receive Date: 20041223
  Receipt Date: 20040830
  Transmission Date: 20050328
  Serious: Yes (Life-Threatening, Hospitalization, Other)
  Sender: FDA-Public Use
  Company Number: JP-ABBOTT-04P-087-0271922-00

PATIENT
  Sex: Male
  Weight: 87 kg

DRUGS (8)
  1. CEFZON CAPSULES [Suspect]
     Indication: BRONCHITIS ACUTE
     Route: 048
     Dates: start: 20040702, end: 20040704
  2. CLARITH [Suspect]
     Indication: PNEUMONIA MYCOPLASMAL
     Dates: start: 20040706, end: 20040710
  3. SEROQUEL [Suspect]
     Indication: SCHIZOPHRENIA
     Route: 048
     Dates: start: 20040630, end: 20040712
  4. SEROQUEL [Suspect]
     Route: 048
     Dates: start: 20040625, end: 20040629
  5. PL GRAN. [Suspect]
     Indication: NASOPHARYNGITIS
     Route: 048
     Dates: start: 20040701, end: 20040704
  6. LEVOMEPROMAZINE [Concomitant]
     Indication: DRUG USE FOR UNKNOWN INDICATION
     Dates: start: 20040702, end: 20040806
  7. CIPROFLOXACIN [Concomitant]
     Indication: DRUG USE FOR UNKNOWN INDICATION
     Route: 042
     Dates: start: 20040707, end: 20040710
  8. MINOCYCLINE HYDROCHLORIDE [Concomitant]
     Indication: DRUG USE FOR UNKNOWN INDICATION
     Dates: start: 20040710, end: 20040713

REACTIONS (9)
  - ANOREXIA [None]
  - BRONCHITIS ACUTE [None]
  - CHILLS [None]
  - CONDITION AGGRAVATED [None]
  - EOSINOPHIL COUNT INCREASED [None]
  - EOSINOPHILIC PNEUMONIA [None]
  - HEPATIC FUNCTION ABNORMAL [None]
  - NASOPHARYNGITIS [None]
  - OXYGEN SATURATION DECREASED [None]
